FAERS Safety Report 6556918-7 (Version None)
Quarter: 2010Q1

REPORT INFORMATION
  Report Type: 
  Country: None (occurrence: None)
  Receive Date: 20100126
  Receipt Date: 20091224
  Transmission Date: 20100710
  Serious: Yes (Hospitalization)
  Sender: FDA-Public Use
  Company Number: 2009003956

PATIENT
  Sex: Female

DRUGS (6)
  1. ERLOTINIB HYDROCHLORIDE [Suspect]
     Indication: HEPATIC NEOPLASM MALIGNANT
     Dosage: 150 MG, ORAL
     Route: 048
     Dates: start: 20091110, end: 20091123
  2. SORAFENIB (TABLET) [Suspect]
     Indication: HEPATIC NEOPLASM MALIGNANT
     Dosage: 800 MG, ORAL
     Route: 048
     Dates: start: 20091110, end: 20091123
  3. NICARDIPINE HCL [Concomitant]
  4. RAMIPRIL [Concomitant]
  5. LANTUS [Concomitant]
  6. SEROPLEX [Concomitant]

REACTIONS (1)
  - PALMAR-PLANTAR ERYTHRODYSAESTHESIA SYNDROME [None]
